FAERS Safety Report 24452097 (Version 2)
Quarter: 2025Q1

REPORT INFORMATION
  Report Type: Report from Study
  Country: RU (occurrence: RU)
  Receive Date: 20241017
  Receipt Date: 20250110
  Transmission Date: 20250408
  Serious: Yes (Other)
  Sender: PHARMING GROUP
  Company Number: RU-PHARMING-PHARU2024000883

PATIENT

DRUGS (8)
  1. LENIOLISIB PHOSPHATE [Suspect]
     Active Substance: LENIOLISIB PHOSPHATE
     Indication: Activated PI3 kinase delta syndrome
     Dosage: 40 MILLIGRAM, BID
     Route: 048
     Dates: start: 20230303, end: 20230822
  2. LENIOLISIB PHOSPHATE [Suspect]
     Active Substance: LENIOLISIB PHOSPHATE
     Dosage: 40 MILLIGRAM, BID
     Route: 048
     Dates: start: 20230303, end: 20230822
  3. LENIOLISIB PHOSPHATE [Suspect]
     Active Substance: LENIOLISIB PHOSPHATE
     Dosage: 40 MILLIGRAM, BID
     Route: 048
     Dates: start: 20230303, end: 20230822
  4. LENIOLISIB PHOSPHATE [Suspect]
     Active Substance: LENIOLISIB PHOSPHATE
     Dosage: 40 MILLIGRAM, BID
     Route: 048
     Dates: start: 20230303, end: 20230822
  5. LENIOLISIB PHOSPHATE [Suspect]
     Active Substance: LENIOLISIB PHOSPHATE
     Dosage: 50 MILLIGRAM, BID
     Route: 048
     Dates: start: 20230823
  6. LENIOLISIB PHOSPHATE [Suspect]
     Active Substance: LENIOLISIB PHOSPHATE
     Dosage: 50 MILLIGRAM, BID
     Route: 048
     Dates: start: 20230823
  7. LENIOLISIB PHOSPHATE [Suspect]
     Active Substance: LENIOLISIB PHOSPHATE
     Dosage: 50 MILLIGRAM, BID
     Route: 048
     Dates: start: 20230823
  8. LENIOLISIB PHOSPHATE [Suspect]
     Active Substance: LENIOLISIB PHOSPHATE
     Dosage: 50 MILLIGRAM, BID
     Route: 048
     Dates: start: 20230823

REACTIONS (3)
  - Dermatitis exfoliative [Recovered/Resolved]
  - Pyrexia [Not Recovered/Not Resolved]
  - Headache [Not Recovered/Not Resolved]

NARRATIVE: CASE EVENT DATE: 20230512
